FAERS Safety Report 9892174 (Version 1)
Quarter: 2014Q1

REPORT INFORMATION
  Report Type: Spontaneous
  Country: US (occurrence: US)
  Receive Date: 20140212
  Receipt Date: 20140212
  Transmission Date: 20141002
  Serious: No
  Sender: FDA-Public Use
  Company Number: US-MALLINCKRODT-T201304891

PATIENT
  Age: 31 Year
  Sex: Female
  Weight: 72.56 kg

DRUGS (7)
  1. FENTANYL TRANSDERMAL SYSTEM [Suspect]
     Indication: FIBROMYALGIA
     Dosage: 50 MCG/HR, Q 72 HOURS
     Route: 062
     Dates: start: 201310
  2. PRISTIQ [Concomitant]
     Dosage: 100 MG, UNK
  3. MOBIC [Concomitant]
     Dosage: 15 MG, UNK
  4. CYMBALTA [Concomitant]
     Dosage: 60 MG, UNK
  5. SEROQUEL [Concomitant]
     Dosage: 300 MG, UNK
  6. DOXYCYCLINE [Concomitant]
     Dosage: 100 MG, UNK
  7. TRAZODONE [Concomitant]
     Dosage: UNK

REACTIONS (3)
  - Incorrect drug administration duration [Recovered/Resolved]
  - Local swelling [Not Recovered/Not Resolved]
  - Drug effect decreased [Not Recovered/Not Resolved]
